FAERS Safety Report 24882210 (Version 2)
Quarter: 2025Q1

REPORT INFORMATION
  Report Type: Report from Study
  Country: US (occurrence: US)
  Receive Date: 20250124
  Receipt Date: 20250130
  Transmission Date: 20250409
  Serious: Yes (Other)
  Sender: ABBVIE
  Company Number: US-ABBVIE-6074187

PATIENT
  Age: 63 Year
  Sex: Female
  Weight: 68 kg

DRUGS (2)
  1. CREON [Suspect]
     Active Substance: PANCRELIPASE AMYLASE\PANCRELIPASE LIPASE\PANCRELIPASE PROTEASE
     Indication: Pancreatic carcinoma
     Route: 048
     Dates: start: 202501
  2. CREON [Suspect]
     Active Substance: PANCRELIPASE AMYLASE\PANCRELIPASE LIPASE\PANCRELIPASE PROTEASE
     Indication: Pancreatic carcinoma
     Route: 048
     Dates: start: 20231218, end: 202410

REACTIONS (9)
  - Chemotherapy [Recovered/Resolved]
  - Weight increased [Not Recovered/Not Resolved]
  - Dyspepsia [Unknown]
  - Abdominal distension [Not Recovered/Not Resolved]
  - Radiotherapy [Recovered/Resolved]
  - Abdominal discomfort [Not Recovered/Not Resolved]
  - Flatulence [Unknown]
  - Product administration error [Unknown]
  - Pain [Unknown]

NARRATIVE: CASE EVENT DATE: 20240101
